FAERS Safety Report 8114769-6 (Version None)
Quarter: 2012Q1

REPORT INFORMATION
  Report Type: 
  Country: None (occurrence: None)
  Receive Date: 20120131
  Receipt Date: 20120117
  Transmission Date: 20120608
  Serious: Yes (Other)
  Sender: FDA-Public Use
  Company Number: 2012SP002686

PATIENT
  Age: 77 Year
  Sex: Female

DRUGS (2)
  1. MOXIFLOXACIN HCL [Suspect]
  2. CEDAX [Suspect]
     Route: 048

REACTIONS (1)
  - RHONCHI [None]
